FAERS Safety Report 8451328-X (Version None)
Quarter: 2012Q2

REPORT INFORMATION
  Report Type: 
  Country: None (occurrence: None)
  Receive Date: 20120620
  Receipt Date: 20120223
  Transmission Date: 20120825
  Serious: No
  Sender: FDA-Public Use
  Company Number: US-VERTEX PHARMACEUTICALS INC.-AE-2012-002709

PATIENT
  Sex: Male
  Weight: 111.68 kg

DRUGS (4)
  1. LISINOPRIL AND HYDROCHLOROTHIAZIDE [Concomitant]
  2. PEGASYS [Concomitant]
     Indication: HEPATITIS C
     Route: 058
  3. INCIVEK [Suspect]
     Indication: HEPATITIS C
     Route: 048
     Dates: start: 20120125
  4. RIBAVIRIN [Concomitant]
     Indication: HEPATITIS C

REACTIONS (2)
  - HAEMORRHOIDS [None]
  - RECTAL HAEMORRHAGE [None]
